FAERS Safety Report 4279038-3 (Version None)
Quarter: 2004Q1

REPORT INFORMATION
  Report Type: 
  Country: None (occurrence: None)
  Receive Date: 20040126
  Receipt Date: 20040115
  Transmission Date: 20041129
  Serious: Yes (Other)
  Sender: FDA-Public Use
  Company Number: US-BRISTOL-MYERS SQUIBB COMPANY-12478731

PATIENT
  Age: 4 Month
  Sex: Male
  Weight: 6 kg

DRUGS (9)
  1. STAVUDINE [Suspect]
     Indication: HIV INFECTION
     Dosage: THERAPY TEMPORARILY HELD ON 29-DEC-2003
     Dates: start: 20031204
  2. LAMIVUDINE [Suspect]
     Indication: HIV INFECTION
     Dosage: THERAPY TEMPORARILY HELD ON 29-DEC-2003
     Dates: start: 20031204
  3. KALETRA [Suspect]
     Indication: HIV INFECTION
     Dosage: THERAPY TEMPORARILY HELD ON 29-DEC-2003
     Dates: start: 20031204
  4. PROPULSID [Concomitant]
  5. MEPRON [Concomitant]
  6. EPOGEN [Concomitant]
     Indication: ANAEMIA
  7. KEFLEX [Concomitant]
  8. SIMETHICONE [Concomitant]
  9. BACTROBAN [Concomitant]

REACTIONS (2)
  - ANAEMIA [None]
  - BLOOD POTASSIUM INCREASED [None]
